FAERS Safety Report 6447020-3 (Version None)
Quarter: 2009Q4

REPORT INFORMATION
  Report Type: 
  Country: None (occurrence: None)
  Receive Date: 20091119
  Receipt Date: 20091109
  Transmission Date: 20100525
  Serious: Yes (Other)
  Sender: FDA-Public Use
  Company Number: US-PFIZER INC-2009295792

PATIENT

DRUGS (1)
  1. ZYVOX [Suspect]
     Dosage: UNK
     Dates: start: 20090101

REACTIONS (3)
  - CHAPPED LIPS [None]
  - FUNGAL INFECTION [None]
  - SWOLLEN TONGUE [None]
